FAERS Safety Report 25426274 (Version 1)
Quarter: 2025Q2

REPORT INFORMATION
  Report Type: Spontaneous
  Country: CN (occurrence: CN)
  Receive Date: 20250612
  Receipt Date: 20250612
  Transmission Date: 20250716
  Serious: Yes (Other)
  Sender: AUROBINDO
  Company Number: 2025CASI00062

PATIENT
  Age: 49 Year
  Sex: Male

DRUGS (4)
  1. EVOMELA [Suspect]
     Active Substance: MELPHALAN HYDROCHLORIDE
     Indication: Plasma cell myeloma
     Route: 042
     Dates: start: 20250509, end: 20250509
  2. EVOMELA [Suspect]
     Active Substance: MELPHALAN HYDROCHLORIDE
     Indication: Transplant
     Route: 042
     Dates: start: 20250510, end: 20250510
  3. ALLOPURINOL [Concomitant]
     Active Substance: ALLOPURINOL
     Indication: Tumour lysis syndrome
     Dosage: 0.25 GRAM, ONCE A DAY
     Route: 048
     Dates: start: 20250507, end: 20250510
  4. NADROPARIN CALCIUM [Concomitant]
     Active Substance: NADROPARIN CALCIUM
     Indication: Transplantation complication
     Dosage: 6150 UNK, ONCE A DAY
     Route: 058
     Dates: start: 20250507, end: 20250516

REACTIONS (2)
  - Cardiac failure [Unknown]
  - Atrial fibrillation [Recovered/Resolved]

NARRATIVE: CASE EVENT DATE: 20250512
